FAERS Safety Report 17684080 (Version 1)
Quarter: 2020Q2

REPORT INFORMATION
  Report Type: Spontaneous
  Country: US (occurrence: US)
  Receive Date: 20200417
  Receipt Date: 20200417
  Transmission Date: 20200714
  Serious: No
  Sender: FDA-Public Use
  Company Number: None

PATIENT
  Age: 31 Year
  Sex: Female
  Weight: 63 kg

DRUGS (1)
  1. BUPROPION HYDROCHLORIDE SR [Suspect]
     Active Substance: BUPROPION HYDROCHLORIDE
     Indication: DEPRESSION
     Dosage: ?          QUANTITY:2 TABLET(S);?
     Route: 048
     Dates: start: 20200409, end: 20200416

REACTIONS (8)
  - Constipation [None]
  - Insomnia [None]
  - Migraine [None]
  - Pruritus [None]
  - Paraesthesia oral [None]
  - Lip swelling [None]
  - Dry mouth [None]
  - Erythema [None]

NARRATIVE: CASE EVENT DATE: 20200416
